FAERS Safety Report 22017335 (Version 2)
Quarter: 2023Q1

REPORT INFORMATION
  Report Type: Spontaneous
  Country: US (occurrence: US)
  Receive Date: 20230221
  Receipt Date: 20230223
  Transmission Date: 20230418
  Serious: Yes (Other)
  Sender: FDA-Public Use
  Company Number: US-PFIZER INC-PV202300018492

PATIENT
  Age: 10 Year
  Sex: Male

DRUGS (4)
  1. TALZENNA [Suspect]
     Active Substance: TALAZOPARIB TOSYLATE
     Indication: Ewing^s sarcoma
     Dosage: 0.25 MG
  2. TALZENNA [Suspect]
     Active Substance: TALAZOPARIB TOSYLATE
     Indication: Back pain
     Dosage: 0.5 MG BID ON DAY 1 AND 0.5 MG DAILY DAYS 2-6, EVERY 21 DAYS
     Route: 048
  3. TALZENNA [Suspect]
     Active Substance: TALAZOPARIB TOSYLATE
     Indication: Palliative care
     Dosage: 0.5 MG BID ON DAY 1 AND 0.5 MG DAILY DAYS 2-6, EVERY 21 DAYS
  4. TALZENNA [Suspect]
     Active Substance: TALAZOPARIB TOSYLATE
     Indication: Medial tibial stress syndrome

REACTIONS (6)
  - Febrile neutropenia [Unknown]
  - Hypokalaemia [Unknown]
  - Thrombocytopenia [Unknown]
  - Anaemia [Unknown]
  - Off label use [Unknown]
  - Off label use [Unknown]
